FAERS Safety Report 6298711-9 (Version None)
Quarter: 2009Q3

REPORT INFORMATION
  Report Type: 
  Country: None (occurrence: None)
  Receive Date: 20090806
  Receipt Date: 20090731
  Transmission Date: 20100115
  Serious: No
  Sender: FDA-Public Use
  Company Number: US-BIOGENIDEC-2009BI015930

PATIENT
  Age: 19 Year
  Sex: Female

DRUGS (3)
  1. TYSABRI [Suspect]
     Indication: MULTIPLE SCLEROSIS
     Route: 042
     Dates: start: 20081204, end: 20090510
  2. TOPAMAX [Concomitant]
     Indication: HEADACHE
  3. BACLOFEN [Concomitant]

REACTIONS (1)
  - ASTHENIA [None]
